FAERS Safety Report 11754944 (Version 10)
Quarter: 2016Q1

REPORT INFORMATION
  Report Type: Spontaneous
  Country: US (occurrence: US)
  Receive Date: 20151119
  Receipt Date: 20160311
  Transmission Date: 20160525
  Serious: Yes (Other)
  Sender: FDA-Public Use
  Company Number: US-009507513-1511USA001144

PATIENT
  Sex: Male

DRUGS (1)
  1. KEYTRUDA [Suspect]
     Active Substance: PEMBROLIZUMAB
     Indication: MALIGNANT MELANOMA STAGE IV
     Dosage: UNK, EVERY 3 WEEKS
     Dates: start: 201503

REACTIONS (15)
  - Skin haemorrhage [Recovering/Resolving]
  - Inappropriate schedule of drug administration [Unknown]
  - Scratch [Unknown]
  - Blood urea increased [Unknown]
  - Blister [Unknown]
  - Skin lesion [Unknown]
  - Drug dose omission [Unknown]
  - Micrographic skin surgery [Unknown]
  - Anxiety [Recovered/Resolved]
  - Scab [Recovering/Resolving]
  - Rash [Recovered/Resolved]
  - Haematocrit decreased [Unknown]
  - Dry skin [Unknown]
  - Weight increased [Unknown]
  - Rash [Unknown]

NARRATIVE: CASE EVENT DATE: 2015
